FAERS Safety Report 25393815 (Version 2)
Quarter: 2025Q2

REPORT INFORMATION
  Report Type: Spontaneous
  Country: JP (occurrence: JP)
  Receive Date: 20250604
  Receipt Date: 20250616
  Transmission Date: 20250716
  Serious: Yes (Other)
  Sender: EMD SERONO INC
  Company Number: JP-Merck Healthcare KGaA-2025027711

PATIENT
  Age: 64 Year
  Sex: Female
  Weight: 65 kg

DRUGS (15)
  1. METGLUCO [Suspect]
     Active Substance: METFORMIN HYDROCHLORIDE
     Indication: Type 2 diabetes mellitus
     Dates: end: 20250326
  2. METFORMIN HYDROCHLORIDE [Suspect]
     Active Substance: METFORMIN HYDROCHLORIDE
     Indication: Type 2 diabetes mellitus
     Dates: end: 20250326
  3. ANAGLIPTIN [Concomitant]
     Active Substance: ANAGLIPTIN
     Indication: Product used for unknown indication
     Dosage: AFTER BREAKFAST AND SUPPER?PRESCRIBED FOR 60 DAYS
     Dates: start: 20250301
  4. GLIMEPIRIDE [Concomitant]
     Active Substance: GLIMEPIRIDE
     Indication: Product used for unknown indication
     Dosage: AFTER BREAKFAST AND SUPPER?PRESCRIBED FOR 60 DAYS
     Dates: start: 20250301
  5. AMLODIPINE BESYLATE\AZILSARTAN [Concomitant]
     Active Substance: AMLODIPINE BESYLATE\AZILSARTAN
     Indication: Product used for unknown indication
     Dosage: AFTER BREAKFAST?PRESCRIBED FOR 60 DAYS
     Dates: start: 20250301
  6. ATORVASTATIN CALCIUM\EZETIMIBE [Concomitant]
     Active Substance: ATORVASTATIN CALCIUM\EZETIMIBE
     Indication: Product used for unknown indication
     Dosage: AFTER BREAKFAST?PRESCRIBED FOR 60 DAYS
     Dates: start: 20250301
  7. CELECOXIB [Concomitant]
     Active Substance: CELECOXIB
     Indication: Product used for unknown indication
     Dosage: AFTER BREAKFAST AND SUPPER?PRESCRIBED FOR 60 DAYS
     Dates: start: 20250301
  8. ZOLPIDEM TARTRATE [Concomitant]
     Active Substance: ZOLPIDEM TARTRATE
     Indication: Product used for unknown indication
     Dosage: BEFORE BEDTIME?PRESCRIBED FOR 60 DAYS
     Dates: start: 20250301
  9. LOXOPROFEN SODIUM [Concomitant]
     Active Substance: LOXOPROFEN SODIUM
     Indication: Pain
     Dosage: 1 PATCH ONCE DAILY TO THE SITE OF PAIN?PRESCRIBED FOR 60 DAYS
     Dates: start: 20250301
  10. VITAMEDIN [BENFOTIAMINE;CYANOCOBALAMIN;PYRIDOXINE HYDROCHLORIDE] [Concomitant]
     Indication: Product used for unknown indication
     Dosage: AFTER BREAKFAST, LUNCH, AND SUPPER, FOR 14 DAYS
     Dates: start: 20250301
  11. ZINC ACETATE [Concomitant]
     Active Substance: ZINC ACETATE
     Indication: Product used for unknown indication
     Dosage: AFTER BREAKFAST, FOR 14 DAYS
     Dates: start: 20250301
  12. VONOPRAZAN FUMARATE [Concomitant]
     Active Substance: VONOPRAZAN FUMARATE
     Indication: Product used for unknown indication
     Dosage: AFTER BREAKFAST AND SUPPER, FOR 7 DAYS
     Dates: start: 20250318
  13. AMOXICILLIN TRIHYDRATE [Concomitant]
     Active Substance: AMOXICILLIN
     Indication: Product used for unknown indication
     Dosage: 250 MG, 6 CAPSULES IN 3 DIVIDED DOSES, FOR 7 DAYS
     Dates: start: 20250318
  14. CLARITHROMYCIN [Concomitant]
     Active Substance: CLARITHROMYCIN
     Indication: Product used for unknown indication
     Dosage: AFTER BREAKFAST AND SUPPER, FOR 7 DAYS
     Dates: start: 20250318
  15. TRIAMCINOLONE ACETONIDE [Concomitant]
     Active Substance: TRIAMCINOLONE ACETONIDE
     Indication: Product used for unknown indication

REACTIONS (5)
  - Cerebral infarction [Recovered/Resolved]
  - Epilepsy [Recovered/Resolved]
  - Status epilepticus [Unknown]
  - Lactic acidosis [Recovered/Resolved]
  - Decreased appetite [Unknown]

NARRATIVE: CASE EVENT DATE: 20250326
